FAERS Safety Report 9496170 (Version 2)
Quarter: 2013Q3

REPORT INFORMATION
  Report Type: Spontaneous
  Country: AU (occurrence: None)
  Receive Date: 20130829
  Receipt Date: 20130916
  Transmission Date: 20140515
  Serious: Yes (Hospitalization)
  Sender: FDA-Public Use
  Company Number: SYM-2013-09387

PATIENT
  Age: 35 Year
  Sex: Female

DRUGS (5)
  1. METRONIDAZOLE (METRONIDAZOLE) [Suspect]
     Indication: PRODUCT USED FOR UNKNOWN INDICATION
     Dosage: 500 MG 2 IN 1 D
     Dates: start: 20130707, end: 20130709
  2. CEFTRIAXONE (CEFTRIAXONE) [Suspect]
     Indication: PRODUCT USED FOR UNKNOWN INDICATION
     Dosage: 1 GM DAILY
     Dates: start: 20130707, end: 20130709
  3. PERTUZUMAB (PERTUZUMAB)(PERTUZUMAB) [Concomitant]
  4. DOCETAXEL ( DOCETAXEL) (DOCETAXEL) [Concomitant]
  5. TRASTUZUMAB (TRASTUZUMAB) [Concomitant]

REACTIONS (1)
  - Febrile neutropenia [None]
